FAERS Safety Report 15632959 (Version 2)
Quarter: 2019Q1

REPORT INFORMATION
  Report Type: Spontaneous
  Country: US (occurrence: US)
  Receive Date: 20181119
  Receipt Date: 20190103
  Transmission Date: 20190417
  Serious: No
  Sender: FDA-Public Use
  Company Number: US-VIFOR (INTERNATIONAL) INC.-VIT-2018-11398

PATIENT
  Sex: Male

DRUGS (9)
  1. VELTASSA [Suspect]
     Active Substance: PATIROMER
     Indication: HYPERKALAEMIA
     Route: 048
     Dates: start: 20181124
  2. FOLIC ACID. [Concomitant]
     Active Substance: FOLIC ACID
  3. ROSUVASTATIN. [Concomitant]
     Active Substance: ROSUVASTATIN
  4. CARDIZEM [Concomitant]
     Active Substance: DILTIAZEM HYDROCHLORIDE
  5. ALLOPURINOL. [Concomitant]
     Active Substance: ALLOPURINOL
  6. BENICAR [Concomitant]
     Active Substance: OLMESARTAN MEDOXOMIL
  7. METOPROLOL. [Concomitant]
     Active Substance: METOPROLOL
  8. VITAMIN D3 [Concomitant]
     Active Substance: CHOLECALCIFEROL
  9. PRESERVISION AREDS 2 [Concomitant]
     Active Substance: MINERALS\VITAMINS

REACTIONS (2)
  - Constipation [Not Recovered/Not Resolved]
  - Blood glucose increased [Not Recovered/Not Resolved]

NARRATIVE: CASE EVENT DATE: 2018
